FAERS Safety Report 9303433 (Version 2)
Quarter: 2013Q3

REPORT INFORMATION
  Report Type: Spontaneous
  Country: IT (occurrence: IT)
  Receive Date: 20130516
  Receipt Date: 20130925
  Transmission Date: 20140515
  Serious: Yes (Hospitalization)
  Sender: FDA-Public Use
  Company Number: 2013AP005104

PATIENT
  Age: 43 Year
  Sex: Female

DRUGS (3)
  1. QUETIAPINE FUMARATE [Suspect]
     Indication: ANTIDEPRESSANT THERAPY
     Route: 048
     Dates: start: 20130331, end: 20130331
  2. LAMOTRIGINE [Suspect]
     Indication: DRUG ABUSE
     Route: 048
     Dates: start: 20130331, end: 20130331
  3. ZYPREXA (OLANZAPINE) [Concomitant]

REACTIONS (4)
  - Faecal incontinence [None]
  - Psychomotor hyperactivity [None]
  - Vomiting [None]
  - Sopor [None]
